FAERS Safety Report 5008896-X (Version None)
Quarter: 2006Q2

REPORT INFORMATION
  Report Type: 
  Country: None (occurrence: None)
  Receive Date: 20060518
  Receipt Date: 20060510
  Transmission Date: 20061013
  Serious: Yes (Other)
  Sender: FDA-Public Use
  Company Number: 2006063090

PATIENT
  Age: 66 Year
  Sex: Male
  Weight: 83.9154 kg

DRUGS (4)
  1. ROGAINE [Suspect]
     Indication: HYPOTRICHOSIS
     Dosage: ONCE DAILY, TOPICAL
     Route: 061
     Dates: start: 20060201
  2. ATENOLOL [Concomitant]
  3. VERAPAMIL [Concomitant]
  4. ATORVASTATIN CALCIUM [Concomitant]

REACTIONS (4)
  - ALOPECIA [None]
  - CONDITION AGGRAVATED [None]
  - MALAISE [None]
  - METAL POISONING [None]
